FAERS Safety Report 23770121 (Version 1)
Quarter: 2024Q2

REPORT INFORMATION
  Report Type: Spontaneous
  Country: CH (occurrence: CH)
  Receive Date: 20240422
  Receipt Date: 20240422
  Transmission Date: 20240716
  Serious: Yes (Hospitalization, Other)
  Sender: FDA-Public Use
  Company Number: CH-BAYER-2023A099197

PATIENT
  Age: 38 Year
  Sex: Female

DRUGS (1)
  1. KYLEENA [Suspect]
     Active Substance: LEVONORGESTREL
     Indication: Contraception
     Dosage: 17.5?G/DAY
     Route: 015
     Dates: start: 20230622, end: 20230701

REACTIONS (4)
  - Genital haemorrhage [Recovered/Resolved]
  - Embedded device [None]
  - Hypokalaemia [None]
  - Hypertension [None]

NARRATIVE: CASE EVENT DATE: 20230701
